FAERS Safety Report 8955430 (Version 1)
Quarter: 2012Q4

REPORT INFORMATION
  Report Type: 
  Country: US (occurrence: US)
  Receive Date: 20121210
  Receipt Date: 20121210
  Transmission Date: 20130627
  Serious: No
  Sender: FDA-Public Use
  Company Number: US-PFIZER INC-2012310108

PATIENT
  Age: 64 Year
  Sex: Male
  Weight: 81.18 kg

DRUGS (3)
  1. NEURONTIN [Suspect]
     Indication: DIABETIC NEUROPATHY
     Dosage: 600 mg (two capsules of 300mg), daily
     Route: 048
     Dates: start: 201211
  2. GLYBURIDE [Concomitant]
     Indication: DIABETES
     Dosage: 10 mg, 2x/day
  3. METFORMIN [Concomitant]
     Indication: DIABETES
     Dosage: 500 mg, 2x/day

REACTIONS (1)
  - Drug ineffective [Unknown]
